FAERS Safety Report 17890031 (Version 3)
Quarter: 2020Q2

REPORT INFORMATION
  Report Type: Report from Study
  Country: JP (occurrence: JP)
  Receive Date: 20200612
  Receipt Date: 20200617
  Transmission Date: 20200714
  Serious: Yes (Hospitalization, Other)
  Sender: FDA-Public Use
  Company Number: JP-PFIZER INC-2019-06095

PATIENT
  Age: 76 Year
  Sex: Male
  Weight: 56 kg

DRUGS (14)
  1. BINIMETINIB [Suspect]
     Active Substance: BINIMETINIB
     Indication: MALIGNANT MELANOMA
     Dosage: 90.00 MG
     Route: 048
     Dates: start: 20190611, end: 20190730
  2. BINIMETINIB [Suspect]
     Active Substance: BINIMETINIB
     Dosage: 60 MG
     Dates: start: 20190903, end: 20191001
  3. OPDIVO [Suspect]
     Active Substance: NIVOLUMAB
     Dosage: 240 MG
     Route: 041
     Dates: start: 20191225, end: 20191225
  4. ENCORAFENIB [Suspect]
     Active Substance: ENCORAFENIB
     Dosage: 300 MG
     Dates: start: 20190903, end: 20191001
  5. ENCORAFENIB [Suspect]
     Active Substance: ENCORAFENIB
     Dosage: UNK, REDUCED DOSE
     Route: 048
     Dates: start: 20200122, end: 20200122
  6. OPDIVO [Suspect]
     Active Substance: NIVOLUMAB
     Dosage: 240.00 MG
     Route: 041
     Dates: start: 20191016, end: 20191127
  7. LANSOPRAZOLE. [Suspect]
     Active Substance: LANSOPRAZOLE
     Indication: MENINGITIS
     Dosage: 15.00 MG
     Route: 048
     Dates: start: 20190521, end: 20191209
  8. NESINA [Concomitant]
     Active Substance: ALOGLIPTIN BENZOATE
     Dosage: 12.5 MG, EVERYDAY
     Route: 048
  9. AMLODIPINE [Concomitant]
     Active Substance: AMLODIPINE BESYLATE
     Dosage: 5 MG, EVERYDAY
     Route: 048
  10. TAKEPRON [Concomitant]
     Active Substance: LANSOPRAZOLE
     Dosage: 30 MG, EVERYDAY
     Route: 042
     Dates: start: 20190510, end: 20190520
  11. BIO-THREE [Concomitant]
     Active Substance: HERBALS
     Dosage: 1 DF, Q8H
     Route: 048
     Dates: start: 20190716
  12. OPDIVO [Suspect]
     Active Substance: NIVOLUMAB
     Indication: MALIGNANT MELANOMA
     Dosage: UNK
     Route: 041
     Dates: start: 20190116, end: 20190410
  13. BINIMETINIB [Suspect]
     Active Substance: BINIMETINIB
     Dosage: UNK, REDUCED DOSE
     Route: 048
     Dates: start: 20200122, end: 20200122
  14. ENCORAFENIB [Suspect]
     Active Substance: ENCORAFENIB
     Indication: MALIGNANT MELANOMA
     Dosage: 450.00 MG
     Route: 048
     Dates: start: 20190611, end: 20190730

REACTIONS (5)
  - Diarrhoea [Recovering/Resolving]
  - Colitis microscopic [Recovered/Resolved]
  - Acarodermatitis [Unknown]
  - Thalamus haemorrhage [Recovered/Resolved]
  - Diarrhoea [Unknown]

NARRATIVE: CASE EVENT DATE: 20190701
